FAERS Safety Report 8373123-2 (Version None)
Quarter: 2012Q2

REPORT INFORMATION
  Report Type: 
  Country: None (occurrence: None)
  Receive Date: 20120521
  Receipt Date: 20120515
  Transmission Date: 20120825
  Serious: Yes (Congenital Anomaly, Other)
  Sender: FDA-Public Use
  Company Number: US-PFIZER INC-2011252234

PATIENT
  Sex: Male

DRUGS (2)
  1. DEPO-PROVERA [Suspect]
     Indication: CONTRACEPTION
     Dosage: UNK
     Route: 064
     Dates: start: 20010101
  2. DEPO-PROVERA [Suspect]
     Dosage: UNK
     Route: 064
     Dates: start: 20020201

REACTIONS (2)
  - SYNDACTYLY [None]
  - MATERNAL EXPOSURE TIMING UNSPECIFIED [None]
